FAERS Safety Report 10873608 (Version 2)
Quarter: 2015Q2

REPORT INFORMATION
  Report Type: Report from Study
  Country: FR (occurrence: FR)
  Receive Date: 20150227
  Receipt Date: 20150617
  Transmission Date: 20150821
  Serious: Yes (Hospitalization)
  Sender: FDA-Public Use
  Company Number: FR-PFIZER INC-FR-WYE-G04083709

PATIENT
  Age: 65 Year
  Sex: Male
  Weight: 71 kg

DRUGS (8)
  1. METHOTREXATE [Suspect]
     Active Substance: METHOTREXATE
     Indication: ACUTE MYELOID LEUKAEMIA
     Dosage: 15 MG, UNK
     Route: 037
     Dates: start: 20090311, end: 20090311
  2. DEPO-MEDROL [Suspect]
     Active Substance: METHYLPREDNISOLONE ACETATE
     Indication: ACUTE MYELOID LEUKAEMIA
     Dosage: 40 MG, UNK
     Route: 037
     Dates: start: 20090311, end: 20090311
  3. FORTUM [Concomitant]
     Active Substance: CEFTAZIDIME
     Indication: PYREXIA
     Dosage: UNK
     Dates: start: 200903, end: 20090403
  4. TARGOCID [Concomitant]
     Active Substance: TEICOPLANIN
     Indication: PYREXIA
     Dosage: UNK
     Dates: start: 200903, end: 20090403
  5. ARACYTINE [Suspect]
     Active Substance: CYTARABINE
     Dosage: 40 MG, UNK
     Route: 037
     Dates: start: 20090311, end: 20090311
  6. GEMTUZUMAB OZOGAMICIN [Suspect]
     Active Substance: GEMTUZUMAB OZOGAMICIN
     Indication: ACUTE MYELOID LEUKAEMIA
     Dosage: 5 MG, DAILY (3 MG/M2) AT DAY 1, 4 AND 7
     Route: 042
     Dates: start: 20090226, end: 20090304
  7. ARACYTINE [Suspect]
     Active Substance: CYTARABINE
     Indication: ACUTE MYELOID LEUKAEMIA
     Dosage: 350 MG (200 MG/M2), 1X/DAY
     Route: 042
     Dates: start: 20090226, end: 20090304
  8. CERUBIDINE [Suspect]
     Active Substance: DAUNORUBICIN HYDROCHLORIDE
     Indication: ACUTE MYELOID LEUKAEMIA
     Dosage: 105.6 MG (60MG/M2), 1X/DAY
     Route: 042
     Dates: start: 20090226, end: 20090304

REACTIONS (2)
  - Subdural haematoma [Recovered/Resolved]
  - Partial seizures [Recovered/Resolved]

NARRATIVE: CASE EVENT DATE: 20090328
